FAERS Safety Report 9193894 (Version 1)
Quarter: 2013Q1

REPORT INFORMATION
  Report Type: Report from Study
  Country: CA (occurrence: CA)
  Receive Date: 20130327
  Receipt Date: 20130327
  Transmission Date: 20140127
  Serious: Yes (Other)
  Sender: FDA-Public Use
  Company Number: CA-PURDUE-CAN-2013-0003942

PATIENT
  Sex: Male
  Weight: 65.8 kg

DRUGS (3)
  1. MORPHINE SULFATE [Suspect]
     Indication: PAIN
     Dosage: UNK
     Route: 065
  2. FENTANYL SANDOZ [Concomitant]
     Indication: PAIN
     Dosage: 75 MG, UNK
     Route: 065
  3. TYLENOL WITH CODEIN #3 [Concomitant]
     Indication: PAIN
     Dosage: UNK
     Route: 065

REACTIONS (1)
  - Myocardial infarction [Recovered/Resolved]
